FAERS Safety Report 10431202 (Version 2)
Quarter: 2014Q4

REPORT INFORMATION
  Report Type: Spontaneous
  Country: FR (occurrence: FR)
  Receive Date: 20140904
  Receipt Date: 20141104
  Transmission Date: 20150528
  Serious: Yes (Other)
  Sender: FDA-Public Use
  Company Number: FR-PFIZER INC-2014242066

PATIENT
  Age: 84 Year
  Sex: Male
  Weight: 75 kg

DRUGS (3)
  1. TOVIAZ [Suspect]
     Active Substance: FESOTERODINE FUMARATE
     Indication: URINARY INCONTINENCE
     Dosage: 4 MG, 1X/DAY
     Dates: start: 20140815
  2. FLECAINE [Concomitant]
     Active Substance: FLECAINIDE
     Indication: ARRHYTHMIA SUPRAVENTRICULAR
     Dosage: 150 MG, 1X/DAY
     Route: 048
     Dates: start: 20140124
  3. KARDEGIC [Concomitant]
     Active Substance: ASPIRIN LYSINE
     Indication: PHLEBITIS
     Dosage: 75 MG, UNK
     Dates: start: 20080724

REACTIONS (6)
  - Mutism [Unknown]
  - Malaise [Unknown]
  - Loss of consciousness [Unknown]
  - Transient global amnesia [Recovered/Resolved]
  - Gait disturbance [Unknown]
  - Dizziness [Unknown]

NARRATIVE: CASE EVENT DATE: 20140824
